FAERS Safety Report 24986273 (Version 1)
Quarter: 2025Q1

REPORT INFORMATION
  Report Type: Spontaneous
  Country: US (occurrence: None)
  Receive Date: 20250218
  Receipt Date: 20250218
  Transmission Date: 20250409
  Serious: Yes (Other)
  Sender: FDA-CTU
  Company Number: None

PATIENT
  Age: 44 Year
  Sex: Male
  Weight: 94.5 kg

DRUGS (2)
  1. MOUNJARO [Suspect]
     Active Substance: TIRZEPATIDE
     Indication: Type 2 diabetes mellitus
     Dates: start: 20241115, end: 20241129
  2. OZEMPIC [Suspect]
     Active Substance: SEMAGLUTIDE

REACTIONS (8)
  - Abdominal pain upper [None]
  - Fibromyalgia [None]
  - Chills [None]
  - Decreased appetite [None]
  - Abdominal discomfort [None]
  - Abdominal discomfort [None]
  - Insomnia [None]
  - Impaired work ability [None]

NARRATIVE: CASE EVENT DATE: 20241130
